FAERS Safety Report 10201309 (Version 2)
Quarter: 2014Q2

REPORT INFORMATION
  Report Type: Spontaneous
  Country: NL (occurrence: NL)
  Receive Date: 20140528
  Receipt Date: 20140611
  Transmission Date: 20141212
  Serious: Yes (Hospitalization)
  Sender: FDA-Public Use
  Company Number: NL-PFIZER INC-2014142884

PATIENT
  Age: 27 Year
  Sex: Female
  Weight: 70 kg

DRUGS (5)
  1. DOXYCYCLINE HYCLATE [Suspect]
     Indication: ANTIBIOTIC PROPHYLAXIS
     Dosage: 100 MG, 1X/DAY
     Dates: start: 20140513
  2. DOXYCYCLINE HYCLATE [Suspect]
     Dosage: UNK
     Dates: end: 20140515
  3. TRANEXAMIC ACID [Concomitant]
     Dosage: 1000 MG, 3X/DAY
     Dates: start: 20140513, end: 20140515
  4. TAMBOCOR [Concomitant]
     Dosage: 200 MG, 1X/DAY
     Dates: start: 20111201
  5. FEMODEEN [Concomitant]
     Dosage: 1 DF, CYCLIC
     Dates: start: 20100101

REACTIONS (4)
  - Muscle spasms [Recovered/Resolved]
  - Asterixis [Recovered/Resolved]
  - Dystonia [Recovered/Resolved]
  - Tremor [Recovered/Resolved]
